FAERS Safety Report 15612007 (Version 1)
Quarter: 2018Q4

REPORT INFORMATION
  Report Type: Spontaneous
  Country: CA (occurrence: CA)
  Receive Date: 20181113
  Receipt Date: 20181113
  Transmission Date: 20190205
  Serious: Yes (Congenital Anomaly, Other)
  Sender: FDA-Public Use
  Company Number: CA-GLAXOSMITHKLINE-CA2018GSK205052

PATIENT

DRUGS (1)
  1. LAMOTRIGINE. [Suspect]
     Active Substance: LAMOTRIGINE
     Indication: PRODUCT USED FOR UNKNOWN INDICATION
     Dosage: 200 MG, BID
     Route: 064

REACTIONS (8)
  - Foetal exposure during pregnancy [Unknown]
  - Congenital musculoskeletal anomaly [Unknown]
  - Encephalocele [Unknown]
  - Congenital cyst [Unknown]
  - Congenital scoliosis [Unknown]
  - Heart disease congenital [Unknown]
  - Limb malformation [Unknown]
  - Multiple congenital abnormalities [Unknown]
